FAERS Safety Report 23389427 (Version 3)
Quarter: 2024Q2

REPORT INFORMATION
  Report Type: Spontaneous
  Country: JP (occurrence: JP)
  Receive Date: 20240110
  Receipt Date: 20240409
  Transmission Date: 20240716
  Serious: Yes (Death, Other)
  Sender: FDA-Public Use
  Company Number: JP-ONO-2024JP000355

PATIENT
  Age: 82 Year
  Sex: Male

DRUGS (8)
  1. OPDIVO [Suspect]
     Active Substance: NIVOLUMAB
     Indication: Transitional cell carcinoma
     Dosage: UNK
     Route: 041
     Dates: start: 20231031, end: 20231031
  2. SOLU-MEDROL [Suspect]
     Active Substance: METHYLPREDNISOLONE SODIUM SUCCINATE
     Indication: Interstitial lung disease
     Dosage: 3 DAYS
  3. SOLU-MEDROL [Suspect]
     Active Substance: METHYLPREDNISOLONE SODIUM SUCCINATE
     Dosage: 3 DAYS
     Dates: start: 20231128
  4. SOLU-MEDROL [Suspect]
     Active Substance: METHYLPREDNISOLONE SODIUM SUCCINATE
     Dosage: 3 DAYS
     Dates: start: 20240105
  5. PREDONINE [Suspect]
     Active Substance: PREDNISOLONE
     Indication: Interstitial lung disease
     Dosage: 14 DAYS
  6. PREDONINE [Suspect]
     Active Substance: PREDNISOLONE
     Dosage: 14 DAYS
     Dates: start: 20231128
  7. PREDONINE [Suspect]
     Active Substance: PREDNISOLONE
     Dosage: 14 DAYS
     Dates: start: 20231212
  8. PREDONINE [Suspect]
     Active Substance: PREDNISOLONE
     Dates: start: 20231212, end: 20231226

REACTIONS (4)
  - Interstitial lung disease [Fatal]
  - Melaena [Fatal]
  - Erythema [Unknown]
  - Large intestinal haemorrhage [Fatal]

NARRATIVE: CASE EVENT DATE: 20231110
